FAERS Safety Report 10866501 (Version 1)
Quarter: 2015Q1

REPORT INFORMATION
  Report Type: Spontaneous
  Country: US (occurrence: None)
  Receive Date: 20150220
  Receipt Date: 20150220
  Transmission Date: 20150721
  Serious: Yes (Death)
  Sender: FDA-Public Use
  Company Number: None

PATIENT
  Age: 79 Year
  Sex: Female

DRUGS (19)
  1. MENTHOL-ZINC OXIDE (CALMOSEPTINE) [Concomitant]
  2. VANCOMYCIN [Concomitant]
     Active Substance: VANCOMYCIN
  3. COENZYME Q10 - VITAMIN E (COQ10 SG 100) [Concomitant]
  4. LIDOCAINE (LIDODERM) [Concomitant]
  5. LORAZEPAM (ATIVAN) [Concomitant]
  6. ACETAMINIOPHEN (ACEPHEN) [Concomitant]
  7. HALOPERIDOL LACTATE (HALDOL) [Concomitant]
  8. SILDENAFIL (REVATIO) [Concomitant]
  9. ACETAMINOPHEN (TYLENOL ARTHRITIS) [Concomitant]
  10. HYOSCYAMINE (LEVSIN SL) [Concomitant]
  11. CETIRIZINE (ZYRTEC) [Concomitant]
  12. OXYCODONE (ROXICODONE INTENSOL) [Concomitant]
  13. TREPROSTINIL (TYVASO) [Concomitant]
  14. BISACODYL (DULCOLAX) [Concomitant]
  15. LETAIRIS [Suspect]
     Active Substance: AMBRISENTAN
     Indication: TRUNCUS ARTERIOSUS PERSISTENT
     Route: 048
     Dates: start: 20091102, end: 201502
  16. LETAIRIS [Suspect]
     Active Substance: AMBRISENTAN
     Route: 048
     Dates: start: 20091102, end: 201502
  17. SCOPOLAMINE BASE (TRANSDERM-SCOP) [Concomitant]
  18. ONDANSETRON (ZOFRAN ODT) [Concomitant]
  19. PEG 3350 - ELECTROLYTES (COLYTE) [Concomitant]

REACTIONS (2)
  - Haematemesis [None]
  - Asthenia [None]

NARRATIVE: CASE EVENT DATE: 20150218
